FAERS Safety Report 25807024 (Version 1)
Quarter: 2025Q3

REPORT INFORMATION
  Report Type: Spontaneous
  Country: US (occurrence: None)
  Receive Date: 20250915
  Receipt Date: 20250915
  Transmission Date: 20251021
  Serious: Yes (Hospitalization)
  Sender: FDA-CTU
  Company Number: None

PATIENT
  Age: 37 Year
  Sex: Male
  Weight: 108 kg

DRUGS (6)
  1. FLUPHENAZINE [Suspect]
     Active Substance: FLUPHENAZINE
     Indication: Schizophrenia
     Dosage: OTHER QUANTITY : 1 TABLET(S);?FREQUENCY : DAILY;?
     Route: 048
  2. GUANFACINE [Concomitant]
     Active Substance: GUANFACINE
  3. VITAMINS [Concomitant]
     Active Substance: VITAMINS
  4. acetaminophie [Concomitant]
  5. ASPIRIN [Concomitant]
     Active Substance: ASPIRIN
  6. CAFFEINE [Concomitant]
     Active Substance: CAFFEINE

REACTIONS (11)
  - Confusional state [None]
  - Fatigue [None]
  - Asthenia [None]
  - Thinking abnormal [None]
  - Speech disorder [None]
  - Brain fog [None]
  - Muscle spasms [None]
  - Dizziness [None]
  - Dizziness [None]
  - Intestinal obstruction [None]
  - Internal haemorrhage [None]

NARRATIVE: CASE EVENT DATE: 20220815
